FAERS Safety Report 23805037 (Version 3)
Quarter: 2024Q2

REPORT INFORMATION
  Report Type: Report from Study
  Country: US (occurrence: US)
  Receive Date: 20240502
  Receipt Date: 20240515
  Transmission Date: 20240716
  Serious: Yes (Hospitalization, Other)
  Sender: FDA-Public Use
  Company Number: US-ABBVIE-5739780

PATIENT
  Sex: Male
  Weight: 65.77 kg

DRUGS (10)
  1. SKYRIZI [Suspect]
     Active Substance: RISANKIZUMAB-RZAA
     Indication: Crohn^s disease
     Route: 058
     Dates: start: 20240502
  2. SKYRIZI [Suspect]
     Active Substance: RISANKIZUMAB-RZAA
     Indication: Crohn^s disease
     Dosage: TIME INTERVAL: TOTAL: FIRST INFUSION
     Route: 042
     Dates: start: 20240130, end: 20240130
  3. SKYRIZI [Suspect]
     Active Substance: RISANKIZUMAB-RZAA
     Indication: Crohn^s disease
     Dosage: TIME INTERVAL: TOTAL: THIRD INFUSION
     Route: 042
     Dates: start: 20240403, end: 20240403
  4. SKYRIZI [Suspect]
     Active Substance: RISANKIZUMAB-RZAA
     Indication: Crohn^s disease
     Dosage: TIME INTERVAL: TOTAL: SECOND INFUSION
     Route: 042
     Dates: start: 20240207, end: 20240207
  5. ATENOLOL [Concomitant]
     Active Substance: ATENOLOL
     Indication: Cardiovascular event prophylaxis
     Dosage: FORM STRENGTH: 25 MG?FREQUENCY TEXT: M,W,F?START DATE TEXT: MANY YEARS
     Route: 048
  6. BUDESONIDE [Concomitant]
     Active Substance: BUDESONIDE
     Indication: Crohn^s disease
     Dosage: FORM STRENGTH: 9 MG
     Route: 048
     Dates: start: 20230915, end: 20240428
  7. PRILOSEC [Concomitant]
     Active Substance: OMEPRAZOLE MAGNESIUM
     Indication: Gastrooesophageal reflux disease
     Dosage: FORM STRENGTH: 20 MG?START DATE TEXT: MANY YEARS
     Route: 048
  8. IMODIUM [Concomitant]
     Active Substance: LOPERAMIDE HYDROCHLORIDE
     Indication: Crohn^s disease
     Dosage: FORM STRENGTH: 4 MG?START DATE TEXT: MANY YEARS
     Route: 048
  9. LIPITOR [Concomitant]
     Active Substance: ATORVASTATIN CALCIUM
     Indication: Product used for unknown indication
     Dosage: FORM STRENGTH: 80 MG?START DATE TEXT: MANY YEARS
     Route: 048
  10. PREDNISONE [Concomitant]
     Active Substance: PREDNISONE
     Indication: Product used for unknown indication

REACTIONS (3)
  - Small intestinal obstruction [Recovering/Resolving]
  - Pain [Recovering/Resolving]
  - Abdominal distension [Unknown]

NARRATIVE: CASE EVENT DATE: 20240101
